FAERS Safety Report 22090260 (Version 2)
Quarter: 2023Q1

REPORT INFORMATION
  Report Type: Spontaneous
  Country: US (occurrence: US)
  Receive Date: 20230313
  Receipt Date: 20230328
  Transmission Date: 20230418
  Serious: No
  Sender: FDA-Public Use
  Company Number: US-BRISTOL-MYERS SQUIBB COMPANY-2023-035520

PATIENT
  Age: 78 Year
  Sex: Female

DRUGS (1)
  1. LENALIDOMIDE [Suspect]
     Active Substance: LENALIDOMIDE
     Indication: Plasma cell myeloma
     Dosage: TAKE 1 CAPSULE BY MOUTH DAILY FOR 21 DAYS THEN 7 DAYS OFF OF A 28 DAY CYCLE
     Route: 048

REACTIONS (10)
  - Fatigue [Unknown]
  - Back pain [Unknown]
  - Pain in extremity [Unknown]
  - Muscular weakness [Unknown]
  - Somnolence [Unknown]
  - Decreased appetite [Unknown]
  - Cough [Unknown]
  - Constipation [Unknown]
  - Laboratory test abnormal [Unknown]
  - Osteopenia [Unknown]

NARRATIVE: CASE EVENT DATE: 20230301
